FAERS Safety Report 4701753-5 (Version None)
Quarter: 2005Q2

REPORT INFORMATION
  Report Type: 
  Country: None (occurrence: None)
  Receive Date: 20050627
  Receipt Date: 20050614
  Transmission Date: 20051028
  Serious: Yes (Other)
  Sender: FDA-Public Use
  Company Number: 2005079847

PATIENT
  Sex: Female

DRUGS (3)
  1. DETROL LA [Suspect]
     Indication: POLLAKIURIA
     Dosage: ORAL
     Route: 048
     Dates: start: 20020101
  2. ARTHROTIED (DICLOFENAC SODIUM, MISOPROSTOL) [Suspect]
     Indication: ARTHRALGIA
  3. DIOVANE  (VALSARTAN) [Concomitant]

REACTIONS (15)
  - ABDOMINAL PAIN [None]
  - ARTHRALGIA [None]
  - BACK PAIN [None]
  - BLOOD CHOLESTEROL INCREASED [None]
  - DRUG DOSE OMISSION [None]
  - DRUG INEFFECTIVE [None]
  - ECONOMIC PROBLEM [None]
  - ENURESIS [None]
  - NERVOUS SYSTEM DISORDER [None]
  - OEDEMA PERIPHERAL [None]
  - PARAESTHESIA [None]
  - RASH [None]
  - TENSION [None]
  - TREATMENT NONCOMPLIANCE [None]
  - VASCULAR OPERATION [None]
